FAERS Safety Report 6656440-3 (Version None)
Quarter: 2010Q1

REPORT INFORMATION
  Report Type: 
  Country: None (occurrence: None)
  Receive Date: 20100329
  Receipt Date: 20100318
  Transmission Date: 20100710
  Serious: Yes (Death, Hospitalization)
  Sender: FDA-Public Use
  Company Number: JP-JNJFOC-20091100226

PATIENT
  Sex: Female
  Weight: 46 kg

DRUGS (8)
  1. DOXORUBICIN HCL [Suspect]
     Indication: OVARIAN CANCER RECURRENT
     Dosage: CYCLE 2
     Route: 042
     Dates: start: 20090804, end: 20090915
  2. DOXORUBICIN HCL [Suspect]
     Dosage: CYCLE 1
     Route: 042
     Dates: start: 20090804, end: 20090915
  3. SHAKUYAKU-K ANZO-TO [Concomitant]
     Route: 048
  4. DOXAZOSIN MESYLATE [Concomitant]
     Route: 048
  5. AMLODIPINE [Concomitant]
     Route: 048
  6. GASMOTIN [Concomitant]
     Route: 048
  7. VOLTAREN [Concomitant]
     Route: 048
  8. AZUNOL [Concomitant]
     Indication: VULVAL ULCERATION
     Route: 061

REACTIONS (1)
  - INTERSTITIAL LUNG DISEASE [None]
